FAERS Safety Report 12606715 (Version 2)
Quarter: 2016Q3

REPORT INFORMATION
  Report Type: Spontaneous
  Country: US (occurrence: US)
  Receive Date: 20160729
  Receipt Date: 20160917
  Transmission Date: 20161109
  Serious: Yes (Other)
  Sender: FDA-Public Use
  Company Number: US-AMGEN-USASP2016094629

PATIENT
  Age: 79 Year
  Sex: Female
  Weight: 46.71 kg

DRUGS (1)
  1. PROLIA [Suspect]
     Active Substance: DENOSUMAB
     Indication: OSTEOPOROSIS POSTMENOPAUSAL
     Dosage: 60 MG (IN 1 ML), UNK
     Route: 058

REACTIONS (10)
  - Muscle strain [Unknown]
  - Back pain [Unknown]
  - Groin pain [Unknown]
  - Pain in jaw [Unknown]
  - Arthralgia [Unknown]
  - Humerus fracture [Recovered/Resolved]
  - Bursitis [Unknown]
  - Pubis fracture [Unknown]
  - Neck pain [Unknown]
  - Fracture nonunion [Unknown]

NARRATIVE: CASE EVENT DATE: 2016
